FAERS Safety Report 24695217 (Version 1)
Quarter: 2024Q4

REPORT INFORMATION
  Report Type: Spontaneous
  Country: US (occurrence: None)
  Receive Date: 20241203
  Receipt Date: 20241203
  Transmission Date: 20250114
  Serious: Yes (Hospitalization)
  Sender: Public
  Company Number: None

PATIENT
  Sex: Male

DRUGS (1)
  1. SCEMBLIX [Suspect]
     Active Substance: ASCIMINIB HYDROCHLORIDE
     Indication: Chronic lymphocytic leukaemia
     Dosage: FREQUENCY : DAILY;?
     Route: 048
     Dates: start: 20240914

REACTIONS (7)
  - Feeding disorder [None]
  - Pancreatitis [None]
  - Gastric ulcer [None]
  - Gastrointestinal microorganism overgrowth [None]
  - Weight decreased [None]
  - Pruritus [None]
  - Rash macular [None]
